FAERS Safety Report 5511892-7 (Version None)
Quarter: 2007Q4

REPORT INFORMATION
  Report Type: 
  Country: None (occurrence: None)
  Receive Date: 20071109
  Receipt Date: 20071029
  Transmission Date: 20080405
  Serious: Yes (Hospitalization)
  Sender: FDA-Public Use
  Company Number: FR-PFIZER INC-2007091081

PATIENT
  Sex: Male

DRUGS (5)
  1. LYRICA [Suspect]
     Indication: PAIN
     Dosage: DAILY DOSE:250MG-FREQ:DAILY
     Route: 048
  2. DEBRIDAT [Suspect]
     Indication: PAIN
     Route: 048
  3. OXYCONTIN [Suspect]
     Indication: PAIN
     Dosage: DAILY DOSE:130MG-FREQ:DAILY
     Route: 048
     Dates: start: 20070705, end: 20070712
  4. OXYNORM [Suspect]
     Indication: PAIN
     Route: 048
     Dates: start: 20070705, end: 20070712
  5. LAROXYL [Suspect]
     Indication: PAIN
     Route: 048
     Dates: start: 20070705, end: 20070715

REACTIONS (5)
  - ACCIDENTAL OVERDOSE [None]
  - HYPOTENSION [None]
  - MIOSIS [None]
  - MYOCLONUS [None]
  - SOMNOLENCE [None]
